FAERS Safety Report 12056810 (Version 2)
Quarter: 2016Q1

REPORT INFORMATION
  Report Type: Spontaneous
  Country: US (occurrence: US)
  Receive Date: 20160210
  Receipt Date: 20160218
  Transmission Date: 20160526
  Serious: Yes (Hospitalization, Other)
  Sender: FDA-Public Use
  Company Number: US-ROCHE-1635267

PATIENT
  Sex: Male

DRUGS (1)
  1. CELLCEPT [Suspect]
     Active Substance: MYCOPHENOLATE MOFETIL\MYCOPHENOLATE MOFETIL HYDROCHLORIDE
     Indication: IGA NEPHROPATHY
     Route: 065
     Dates: start: 201301

REACTIONS (3)
  - Lung infection [Unknown]
  - Tuberculosis [Unknown]
  - Renal injury [Unknown]

NARRATIVE: CASE EVENT DATE: 201305
